FAERS Safety Report 5940166-5 (Version None)
Quarter: 2008Q4

REPORT INFORMATION
  Report Type: 
  Country: None (occurrence: None)
  Receive Date: 20081104
  Receipt Date: 20081028
  Transmission Date: 20090506
  Serious: Yes (Hospitalization)
  Sender: FDA-Public Use
  Company Number: BE-BAYER-200829369GPV

PATIENT
  Age: 37 Year
  Sex: Male
  Weight: 72 kg

DRUGS (2)
  1. AVELOX [Suspect]
     Indication: BRONCHITIS
     Dosage: TOTAL DAILY DOSE: 400 MG  UNIT DOSE: 400 MG
     Route: 048
     Dates: start: 20081005, end: 20081008
  2. DAFALGAN [Suspect]
     Indication: ARTHRALGIA
     Dosage: TOTAL DAILY DOSE: 6 G  UNIT DOSE: 2 G
     Route: 048
     Dates: start: 20081003

REACTIONS (1)
  - HEPATITIS TOXIC [None]
